FAERS Safety Report 6802777-4 (Version None)
Quarter: 2010Q2

REPORT INFORMATION
  Report Type: 
  Country: None (occurrence: None)
  Receive Date: 20100628
  Receipt Date: 20100615
  Transmission Date: 20101027
  Serious: Yes (Hospitalization)
  Sender: FDA-Public Use
  Company Number: US-ELI_LILLY_AND_COMPANY-US201005006068

PATIENT
  Sex: Female
  Weight: 46.712 kg

DRUGS (11)
  1. FORTEO [Suspect]
     Indication: OSTEOPOROSIS
     Dosage: 20 UG, DAILY (1/D)
     Dates: start: 20100310
  2. XALATAN [Concomitant]
     Dosage: UNK, DAILY (1/D)
  3. SYNTHROID [Concomitant]
     Dosage: 50 UG, DAILY (1/D)
     Route: 048
  4. CORTICOSTEROID NOS [Concomitant]
     Dates: start: 20100223
  5. CALCIUM CARBONATE [Concomitant]
  6. VITAMIN D [Concomitant]
     Dosage: 400 U, 2/D
  7. LASIX [Concomitant]
     Dosage: UNK, DAILY (1/D)
  8. OMEPRAZOLE [Concomitant]
     Dosage: 20 MG, DAILY (1/D)
     Route: 048
  9. PLAQUENIL [Concomitant]
     Dosage: 200 MG, DAILY (1/D)
  10. PREDNISONE [Concomitant]
     Dosage: 2.5 MG, DAILY (1/D)
  11. POTASSIUM CHLORIDE [Concomitant]

REACTIONS (4)
  - ACTIVITIES OF DAILY LIVING IMPAIRED [None]
  - ASTHENIA [None]
  - ATRIAL FIBRILLATION [None]
  - GAIT DISTURBANCE [None]
